FAERS Safety Report 12826089 (Version 1)
Quarter: 2016Q4

REPORT INFORMATION
  Report Type: Spontaneous
  Country: US (occurrence: US)
  Receive Date: 20161006
  Receipt Date: 20161006
  Transmission Date: 20170207
  Serious: No
  Sender: FDA-Public Use
  Company Number: US-AMGEN-USASP2016117688

PATIENT
  Age: 67 Year
  Sex: Male

DRUGS (2)
  1. VECTIBIX [Suspect]
     Active Substance: PANITUMUMAB
     Indication: COLON CANCER METASTATIC
     Dosage: UNK
     Route: 065
     Dates: start: 201512
  2. VECTIBIX [Suspect]
     Active Substance: PANITUMUMAB
     Dosage: 450 MG, UNK
     Route: 065
     Dates: start: 20160816

REACTIONS (2)
  - Rash [Unknown]
  - Rash pruritic [Unknown]
